FAERS Safety Report 9336404 (Version 1)
Quarter: 2013Q2

REPORT INFORMATION
  Report Type: Spontaneous
  Country: DE (occurrence: DE)
  Receive Date: 20130607
  Receipt Date: 20130607
  Transmission Date: 20140414
  Serious: Yes (Hospitalization)
  Sender: FDA-Public Use
  Company Number: DE-ROCHE-1232975

PATIENT
  Age: 51 Year
  Sex: Male
  Weight: 70 kg

DRUGS (2)
  1. CYMEVENE [Suspect]
     Indication: CYTOMEGALOVIRUS INFECTION
     Route: 042
  2. GRANOCYTE [Suspect]
     Indication: LEUKOPENIA
     Route: 058

REACTIONS (3)
  - Coagulopathy [Recovered/Resolved]
  - Fibrinolysis [Recovered/Resolved]
  - Haemolysis [Recovered/Resolved]
